FAERS Safety Report 25109182 (Version 1)
Quarter: 2025Q1

REPORT INFORMATION
  Report Type: Report from Study
  Country: US (occurrence: US)
  Receive Date: 20250323
  Receipt Date: 20250323
  Transmission Date: 20250408
  Serious: Yes (Hospitalization, Other)
  Sender: CSL BEHRING
  Company Number: US-BEH-2024176451

PATIENT
  Age: 63 Year
  Sex: Female
  Weight: 86 kg

DRUGS (4)
  1. HIZENTRA [Suspect]
     Active Substance: HUMAN IMMUNOGLOBULIN G
     Indication: Chronic inflammatory demyelinating polyradiculoneuropathy
     Route: 065
  2. HIZENTRA [Suspect]
     Active Substance: HUMAN IMMUNOGLOBULIN G
     Route: 058
     Dates: start: 20240106
  3. HIZENTRA [Suspect]
     Active Substance: HUMAN IMMUNOGLOBULIN G
     Route: 065
  4. DIPHENHYDRAMINE [Concomitant]
     Active Substance: DIPHENHYDRAMINE

REACTIONS (12)
  - Asthenia [Unknown]
  - Injection site discharge [Unknown]
  - Product use issue [Unknown]
  - Drug ineffective [Unknown]
  - Mobility decreased [Unknown]
  - Hypoaesthesia [Unknown]
  - Swelling face [Unknown]
  - Asthenia [Unknown]
  - Infusion site discharge [Unknown]
  - Product distribution issue [Unknown]
  - Product dose omission issue [Unknown]
  - Insurance issue [Unknown]

NARRATIVE: CASE EVENT DATE: 20250222
